FAERS Safety Report 7115128-5 (Version None)
Quarter: 2010Q4

REPORT INFORMATION
  Report Type: 
  Country: None (occurrence: None)
  Receive Date: 20101116
  Receipt Date: 20101116
  Transmission Date: 20110411
  Serious: Yes (Hospitalization)
  Sender: FDA-Public Use
  Company Number: None

PATIENT
  Sex: Male
  Weight: 61 kg

DRUGS (2)
  1. CISPLATIN [Suspect]
     Dosage: 82.5 MG
     Dates: end: 20101101
  2. TAXOL [Suspect]
     Dosage: 41.25 MG
     Dates: end: 20101101

REACTIONS (5)
  - HYPERHIDROSIS [None]
  - HYPOTENSION [None]
  - NEUTROPENIA [None]
  - SYNCOPE [None]
  - TACHYCARDIA [None]
